FAERS Safety Report 8853343 (Version 2)
Quarter: 2012Q4

REPORT INFORMATION
  Report Type: 
  Country: US (occurrence: US)
  Receive Date: 20121023
  Receipt Date: 20121102
  Transmission Date: 20130627
  Serious: Yes (Other)
  Sender: FDA-Public Use
  Company Number: US-009507513-1210USA006628

PATIENT
  Age: 59 Year
  Sex: Female

DRUGS (1)
  1. FOSAMAX [Suspect]
     Indication: OSTEOPOROSIS
     Route: 048

REACTIONS (4)
  - Surgery [Unknown]
  - Drug ineffective [Recovered/Resolved]
  - Femur fracture [Recovered/Resolved]
  - Femur fracture [Recovered/Resolved]
